FAERS Safety Report 7964863-5 (Version None)
Quarter: 2011Q4

REPORT INFORMATION
  Report Type: 
  Country: None (occurrence: None)
  Receive Date: 20111208
  Receipt Date: 20111208
  Transmission Date: 20120403
  Serious: Yes (Life-Threatening, Other)
  Sender: FDA-Public Use
  Company Number: None

PATIENT
  Age: 64 Year
  Sex: Female
  Weight: 115.21 kg

DRUGS (10)
  1. CALCIUM [Concomitant]
     Route: 048
  2. OMEPRAZOLE [Concomitant]
     Route: 048
  3. WARFARIN SODIUM [Concomitant]
     Route: 048
  4. VITAMIN D [Concomitant]
     Route: 048
  5. LYRICA [Suspect]
     Indication: NEURALGIA
     Dosage: 100MG
     Route: 048
     Dates: start: 20111130, end: 20111201
  6. LEXAPRO [Concomitant]
     Route: 048
  7. MELOXICAM [Concomitant]
     Route: 048
  8. ZOLPIDEM [Concomitant]
     Route: 048
  9. CLONAZEPAM [Concomitant]
     Route: 048
  10. VITAMIN B COMPLEX CAP [Concomitant]
     Route: 048

REACTIONS (3)
  - VISION BLURRED [None]
  - PARALYSIS [None]
  - APHASIA [None]
